FAERS Safety Report 6316977-3 (Version None)
Quarter: 2009Q3

REPORT INFORMATION
  Report Type: 
  Country: None (occurrence: None)
  Receive Date: 20090820
  Receipt Date: 20090807
  Transmission Date: 20100115
  Serious: Yes (Disabling)
  Sender: FDA-Public Use
  Company Number: FR-MYLANLABS-2009S1014025

PATIENT
  Age: 63 Year
  Sex: Male

DRUGS (4)
  1. METHOTREXATE MERCK 50 MG/2 ML [Suspect]
     Route: 037
     Dates: start: 20090331, end: 20090331
  2. DEPO-MEDROL [Suspect]
     Route: 037
     Dates: start: 20090331, end: 20090331
  3. ARACYTINE [Suspect]
     Route: 037
     Dates: start: 20090331, end: 20090331
  4. CYTARABINE [Suspect]
     Indication: LYMPHOMA
     Route: 037
     Dates: start: 20090331, end: 20090331

REACTIONS (4)
  - ENCEPHALITIS [None]
  - MYELITIS [None]
  - PARAPLEGIA [None]
  - PSYCHOMOTOR SKILLS IMPAIRED [None]
